FAERS Safety Report 6282297-9 (Version None)
Quarter: 2009Q3

REPORT INFORMATION
  Report Type: 
  Country: None (occurrence: None)
  Receive Date: 20090722
  Receipt Date: 20090722
  Transmission Date: 20100115
  Serious: Yes (Hospitalization)
  Sender: FDA-Public Use
  Company Number: None

PATIENT
  Age: 72 Year
  Sex: Male
  Weight: 54.8852 kg

DRUGS (2)
  1. WARFARIN SODIUM [Suspect]
     Indication: CARDIAC FAILURE CONGESTIVE
     Dosage: WARFARIN 5 MG PO
     Route: 048
  2. WARFARIN SODIUM [Suspect]
     Indication: MYOCARDIAL INFARCTION
     Dosage: WARFARIN 5 MG PO
     Route: 048

REACTIONS (1)
  - GASTROINTESTINAL HAEMORRHAGE [None]
